FAERS Safety Report 18147911 (Version 2)
Quarter: 2020Q3

REPORT INFORMATION
  Report Type: Report from Study
  Country: BE (occurrence: BE)
  Receive Date: 20200813
  Receipt Date: 20200817
  Transmission Date: 20201103
  Serious: Yes (Hospitalization)
  Sender: FDA-Public Use
  Company Number: BE-TAKEDA-2020TUS034518

PATIENT
  Sex: Female

DRUGS (2)
  1. FILGOTINIB [Concomitant]
     Active Substance: FILGOTINIB
     Dosage: UNK
  2. VEDOLIZUMAB [Suspect]
     Active Substance: VEDOLIZUMAB
     Indication: INFLAMMATORY BOWEL DISEASE
     Dosage: UNK
     Route: 042
     Dates: start: 20170315, end: 20190128

REACTIONS (1)
  - Benign breast neoplasm [Recovered/Resolved]

NARRATIVE: CASE EVENT DATE: 201911
